FAERS Safety Report 8495093 (Version 3)
Quarter: 2014Q1

REPORT INFORMATION
  Report Type: Spontaneous
  Country: BR (occurrence: BR)
  Receive Date: 20120405
  Receipt Date: 20140303
  Transmission Date: 20141002
  Serious: Yes (Death, Hospitalization, Other)
  Sender: FDA-Public Use
  Company Number: BR-SANOFI-AVENTIS-2012SA022191

PATIENT
  Age: 20 Year
  Sex: Female

DRUGS (4)
  1. LANTUS [Suspect]
     Indication: TYPE 1 DIABETES MELLITUS
     Dosage: STRENGTH 3 ML CARTRIDGE
     Route: 058
     Dates: end: 201104
  2. OPTIPEN [Concomitant]
     Indication: DEVICE THERAPY
     Dates: end: 201104
  3. EUTIROX [Concomitant]
     Indication: HYPOTHYROIDISM
     Dosage: STRENGTH 100 MCG
     Route: 048
     Dates: end: 201104
  4. HUMALOG [Concomitant]
     Indication: TYPE 1 DIABETES MELLITUS
     Dosage: DOSAGE ACCORDING TO GLYCEMIC VALUES
     Route: 058
     Dates: end: 201104

REACTIONS (7)
  - Cardiac arrest [Fatal]
  - Respiratory failure [Fatal]
  - Dyspnoea [Fatal]
  - General physical health deterioration [Unknown]
  - Infection [Unknown]
  - Back pain [Unknown]
  - Hyperglycaemia [Unknown]
